FAERS Safety Report 23546166 (Version 1)
Quarter: 2024Q1

REPORT INFORMATION
  Report Type: Spontaneous
  Country: TR (occurrence: TR)
  Receive Date: 20240220
  Receipt Date: 20240220
  Transmission Date: 20240410
  Serious: Yes (Hospitalization, Other)
  Sender: FDA-Public Use
  Company Number: TR-009507513-2402TUR005669

PATIENT
  Age: 65 Year
  Sex: Male

DRUGS (1)
  1. BCG LIVE [Suspect]
     Active Substance: BACILLUS CALMETTE-GUERIN SUBSTRAIN TICE LIVE ANTIGEN
     Indication: Bladder transitional cell carcinoma
     Dosage: 40 MG/ML X 2 VIALS
     Route: 043

REACTIONS (1)
  - Guillain-Barre syndrome [Unknown]
